FAERS Safety Report 15481162 (Version 1)
Quarter: 2018Q4

REPORT INFORMATION
  Report Type: Report from Study
  Country: TR (occurrence: TR)
  Receive Date: 20181010
  Receipt Date: 20181010
  Transmission Date: 20190205
  Serious: Yes (Death, Hospitalization)
  Sender: FDA-Public Use
  Company Number: TR-TEVA-2018-TR-961359

PATIENT
  Age: 42 Year
  Sex: Female

DRUGS (3)
  1. LANSOPRAZOLE. [Concomitant]
     Active Substance: LANSOPRAZOLE
     Route: 065
  2. METHOTREXATE. [Suspect]
     Active Substance: METHOTREXATE
     Indication: AUTOINFLAMMATORY DISEASE
     Route: 065
  3. FOLIC ACID. [Concomitant]
     Active Substance: FOLIC ACID
     Route: 065

REACTIONS (4)
  - Pancytopenia [Fatal]
  - Incorrect dosage administered [Fatal]
  - Pyrexia [Fatal]
  - Toxicity to various agents [Fatal]
